FAERS Safety Report 4894851-7 (Version None)
Quarter: 2006Q1

REPORT INFORMATION
  Report Type: 
  Country: None (occurrence: None)
  Receive Date: 20060126
  Receipt Date: 20060126
  Transmission Date: 20060701
  Serious: Yes (Hospitalization)
  Sender: FDA-Public Use
  Company Number: None

PATIENT
  Age: 43 Year
  Sex: Male
  Weight: 84.369 kg

DRUGS (2)
  1. DEMADEX [Suspect]
     Indication: CARDIAC FAILURE CONGESTIVE
     Dosage: 1 TAB DAILY
  2. DEMADEX [Suspect]
     Indication: CARDIOMYOPATHY
     Dosage: 1 TAB DAILY

REACTIONS (4)
  - DRUG INTOLERANCE [None]
  - FLUID RETENTION [None]
  - PHARMACEUTICAL PRODUCT COMPLAINT [None]
  - WEIGHT INCREASED [None]
